FAERS Safety Report 18294116 (Version 2)
Quarter: 2020Q3

REPORT INFORMATION
  Report Type: Spontaneous
  Country: US (occurrence: US)
  Receive Date: 20200922
  Receipt Date: 20200922
  Transmission Date: 20201103
  Serious: No
  Sender: FDA-Public Use
  Company Number: US-SHIRE-US202030766

PATIENT
  Sex: Male

DRUGS (4)
  1. GATTEX [Suspect]
     Active Substance: TEDUGLUTIDE\WATER
     Indication: PRODUCT USED FOR UNKNOWN INDICATION
     Dosage: 0.3200 UNK, 1X/DAY:QD
     Route: 058
     Dates: start: 20160817
  2. GATTEX [Suspect]
     Active Substance: TEDUGLUTIDE\WATER
     Indication: PRODUCT USED FOR UNKNOWN INDICATION
     Dosage: 0.3200 UNK, 1X/DAY:QD
     Route: 058
     Dates: start: 20160817
  3. GATTEX [Suspect]
     Active Substance: TEDUGLUTIDE\WATER
     Indication: PRODUCT USED FOR UNKNOWN INDICATION
     Dosage: 0.3200 UNK, 1X/DAY:QD
     Route: 058
     Dates: start: 20160817
  4. GATTEX [Suspect]
     Active Substance: TEDUGLUTIDE\WATER
     Indication: PRODUCT USED FOR UNKNOWN INDICATION
     Dosage: 0.3200 UNK, 1X/DAY:QD
     Route: 058
     Dates: start: 20160817

REACTIONS (3)
  - Abdominal discomfort [Recovering/Resolving]
  - Scar pain [Recovering/Resolving]
  - Diarrhoea [Recovering/Resolving]
